FAERS Safety Report 15304660 (Version 1)
Quarter: 2018Q4

REPORT INFORMATION
  Report Type: Report from Study
  Country: TW (occurrence: US)
  Receive Date: 20180821
  Receipt Date: 20180821
  Transmission Date: 20190204
  Serious: Yes (Death)
  Sender: FDA-Public Use
  Company Number: US-YUNG SHIN PHARMACEUTICAL IND.  CO., LTD.-2054048

PATIENT
  Age: 48 Year
  Sex: Female

DRUGS (2)
  1. LAMOTRIGINE. [Concomitant]
     Active Substance: LAMOTRIGINE
  2. CEPHALEXIN. [Suspect]
     Active Substance: CEPHALEXIN

REACTIONS (2)
  - Drug-induced liver injury [Fatal]
  - Toxic epidermal necrolysis [Fatal]
